FAERS Safety Report 6749627-2 (Version None)
Quarter: 2010Q2

REPORT INFORMATION
  Report Type: 
  Country: None (occurrence: None)
  Receive Date: 20100601
  Receipt Date: 20100525
  Transmission Date: 20101027
  Serious: Yes (Hospitalization)
  Sender: FDA-Public Use
  Company Number: A0861825A

PATIENT
  Age: 68 Year
  Sex: Female
  Weight: 93.6 kg

DRUGS (1)
  1. AVANDIA [Suspect]
     Route: 048
     Dates: start: 20050101, end: 20080101

REACTIONS (3)
  - CARDIAC FAILURE [None]
  - CHEST PAIN [None]
  - CORONARY ARTERY DISEASE [None]
